FAERS Safety Report 8981506 (Version 1)
Quarter: 2012Q4

REPORT INFORMATION
  Report Type: 
  Country: IT (occurrence: IT)
  Receive Date: 20121221
  Receipt Date: 20121221
  Transmission Date: 20130627
  Serious: Yes (Other)
  Sender: FDA-Public Use
  Company Number: IT-MYLANLABS-2012S1025597

PATIENT
  Age: 21 Year
  Sex: Female

DRUGS (2)
  1. FLUOXETINE [Suspect]
     Dosage: Increasing dosage up to 20mg daily
     Route: 065
  2. ARIPIPRAZOLE [Interacting]
     Indication: TOURETTE^S DISORDER
     Dosage: Increasing dosage up to 7.5mg daily.
     Route: 065

REACTIONS (5)
  - Oculogyric crisis [Recovered/Resolved]
  - Drug interaction [Recovered/Resolved]
  - Confusional state [Recovered/Resolved]
  - Somnolence [Recovered/Resolved]
  - Posture abnormal [Recovered/Resolved]
